FAERS Safety Report 16565935 (Version 6)
Quarter: 2019Q3

REPORT INFORMATION
  Report Type: Spontaneous
  Country: US (occurrence: US)
  Receive Date: 20190712
  Receipt Date: 20190923
  Transmission Date: 20191004
  Serious: Yes (Other)
  Sender: FDA-Public Use
  Company Number: US-PFIZER INC-2019293866

PATIENT
  Age: 85 Year
  Sex: Female
  Weight: 51 kg

DRUGS (15)
  1. SIMVASTATIN. [Concomitant]
     Active Substance: SIMVASTATIN
     Indication: BLOOD CHOLESTEROL ABNORMAL
     Dosage: 20 MG, UNK
  2. ELIQUIS [Suspect]
     Active Substance: APIXABAN
     Indication: HEART VALVE REPLACEMENT
  3. ELIQUIS [Suspect]
     Active Substance: APIXABAN
     Indication: CARDIAC VALVE DISEASE
  4. ELIQUIS [Suspect]
     Active Substance: APIXABAN
     Indication: STENT PLACEMENT
  5. PLAVIX [Suspect]
     Active Substance: CLOPIDOGREL BISULFATE
     Indication: CARDIAC VALVE DISEASE
     Dosage: UNK
  6. ELIQUIS [Suspect]
     Active Substance: APIXABAN
     Indication: AORTIC VALVE REPLACEMENT
     Dosage: 2.5 MG, 2X/DAY (TWICE A DAY BY MOUTH WITH FOOD IN MORNING AND AFTERNOON)
     Route: 048
     Dates: start: 20180627
  7. METOPROLOL. [Concomitant]
     Active Substance: METOPROLOL
     Indication: BLOOD PRESSURE ABNORMAL
     Dosage: UNK, 2X/DAY (1/2 25 MG BY MOUTH TWICE DAILY)
     Route: 048
     Dates: start: 201802
  8. IBRANCE [Suspect]
     Active Substance: PALBOCICLIB
     Indication: BREAST CANCER METASTATIC
  9. PLAVIX [Suspect]
     Active Substance: CLOPIDOGREL BISULFATE
     Indication: STENT PLACEMENT
  10. AROMASIN [Suspect]
     Active Substance: EXEMESTANE
     Indication: OESTROGEN THERAPY
     Dosage: 25 MG, DAILY
     Route: 048
     Dates: start: 20190616
  11. CLOPIDOGREL [Suspect]
     Active Substance: CLOPIDOGREL BISULFATE
     Dosage: 75 MG, 1X/DAY
     Route: 048
     Dates: start: 20180627, end: 201906
  12. SIMVASTATIN. [Concomitant]
     Active Substance: SIMVASTATIN
     Dosage: 40 MG, 1X/DAY
     Route: 048
  13. AROMASIN [Suspect]
     Active Substance: EXEMESTANE
     Dosage: UNK, CYCLIC [I TAKE FOR 7 DAYS AROMASIN]
  14. IBRANCE [Suspect]
     Active Substance: PALBOCICLIB
     Indication: NEOPLASM MALIGNANT
     Dosage: 100 MG, CYCLIC (3 WEEKS ON AND 1 WEEK OFF)/I TAKE IBRANCE 21 DAYS AND I AM OFF
     Route: 048
     Dates: start: 20190616
  15. ONE A DAY [MINERALS NOS;VITAMINS NOS] [Concomitant]
     Dosage: UNK, 1X/DAY

REACTIONS (8)
  - Nausea [Unknown]
  - Neoplasm progression [Unknown]
  - Contusion [Not Recovered/Not Resolved]
  - Increased tendency to bruise [Not Recovered/Not Resolved]
  - Asthenia [Unknown]
  - Haemorrhage [Unknown]
  - Malaise [Unknown]
  - Blood disorder [Unknown]

NARRATIVE: CASE EVENT DATE: 2019
